FAERS Safety Report 4815168-2 (Version None)
Quarter: 2005Q4

REPORT INFORMATION
  Report Type: 
  Country: None (occurrence: None)
  Receive Date: 20051026
  Receipt Date: 20051010
  Transmission Date: 20060501
  Serious: Yes (Other)
  Sender: FDA-Public Use
  Company Number: FR_051007297

PATIENT
  Age: 38 Year
  Sex: Female

DRUGS (2)
  1. ZYPREXA [Suspect]
     Indication: DELUSION
     Dosage: 10 MG/1 DAY
     Dates: start: 20051010
  2. RISPERDAL [Concomitant]

REACTIONS (6)
  - BRADYARRHYTHMIA [None]
  - CONDUCTION DISORDER [None]
  - HYPOTENSION [None]
  - SLEEP DISORDER [None]
  - SYNCOPE [None]
  - VENTRICULAR EXTRASYSTOLES [None]
